FAERS Safety Report 10192286 (Version 2)
Quarter: 2014Q2

REPORT INFORMATION
  Report Type: Spontaneous
  Country: JP (occurrence: JP)
  Receive Date: 20140523
  Receipt Date: 20140612
  Transmission Date: 20141212
  Serious: Yes (Hospitalization)
  Sender: FDA-Public Use
  Company Number: PHHY2014JP062518

PATIENT
  Age: 95 Year
  Sex: Female

DRUGS (1)
  1. RIVASTIGMIN [Suspect]
     Indication: DEMENTIA ALZHEIMER^S TYPE
     Dosage: 18 MG, ONCE A DAY
     Route: 062

REACTIONS (3)
  - White blood cell count increased [Unknown]
  - C-reactive protein increased [Unknown]
  - Decreased appetite [Unknown]
